FAERS Safety Report 24913865 (Version 3)
Quarter: 2025Q1

REPORT INFORMATION
  Report Type: Report from Study
  Country: IN (occurrence: IN)
  Receive Date: 20250202
  Receipt Date: 20250320
  Transmission Date: 20250408
  Serious: Yes (Death, Other)
  Sender: ROCHE
  Company Number: IN-ROCHE-10000195431

PATIENT
  Age: 41 Year
  Sex: Female

DRUGS (1)
  1. PHESGO [Suspect]
     Active Substance: HYALURONIDASE-ZZXF\PERTUZUMAB\TRASTUZUMAB
     Indication: Breast cancer metastatic
     Route: 058
     Dates: start: 20250113

REACTIONS (4)
  - Heavy menstrual bleeding [Unknown]
  - Epistaxis [Unknown]
  - Full blood count abnormal [Unknown]
  - Death [Fatal]
